FAERS Safety Report 8664151 (Version 3)
Quarter: 2013Q1

REPORT INFORMATION
  Report Type: Spontaneous
  Country: GB (occurrence: None)
  Receive Date: 20120627
  Receipt Date: 20130329
  Transmission Date: 20140127
  Serious: Yes (Other)
  Sender: FDA-Public Use
  Company Number: AUR-APL-2012-02713

PATIENT
  Age: 16 Year
  Sex: Male

DRUGS (2)
  1. FLUOXETINE [Suspect]
     Indication: MAJOR DEPRESSION
     Dosage: 20 MG (20 MG, 1 IN 1 D), ORAL
     Route: 048
  2. CITALOPRAM [Suspect]
     Indication: MAJOR DEPRESSION
     Dates: start: 200708

REACTIONS (15)
  - Homicide [None]
  - Compulsions [None]
  - Drug dose omission [None]
  - Incorrect dose administered [None]
  - Movement disorder [None]
  - Feeling abnormal [None]
  - Conduct disorder [None]
  - Educational problem [None]
  - Mental disorder [None]
  - Thinking abnormal [None]
  - Blunted affect [None]
  - Substance use [None]
  - Dreamy state [None]
  - Dissociation [None]
  - Aggression [None]
